FAERS Safety Report 10635778 (Version 1)
Quarter: 2014Q4

REPORT INFORMATION
  Report Type: Spontaneous
  Country: CH (occurrence: CH)
  Receive Date: 20141205
  Receipt Date: 20141205
  Transmission Date: 20150529
  Serious: Yes (Other)
  Sender: FDA-Public Use
  Company Number: CH-ELI_LILLY_AND_COMPANY-CH201411011018

PATIENT
  Age: 34 Year
  Sex: Female

DRUGS (8)
  1. ZYPREXA [Suspect]
     Active Substance: OLANZAPINE
     Indication: PRODUCT USED FOR UNKNOWN INDICATION
     Dosage: 25 MG, 10 CAPS
     Route: 048
     Dates: start: 20140107, end: 20140107
  2. ULCOGANT [Suspect]
     Active Substance: SUCRALFATE
     Indication: PRODUCT USED FOR UNKNOWN INDICATION
     Dosage: 10 CAPS
     Route: 048
     Dates: start: 20140107, end: 20140107
  3. SEROQUEL XR [Suspect]
     Active Substance: QUETIAPINE FUMARATE
     Dosage: 200 MG, 10 CAPS
     Route: 048
     Dates: start: 20140107, end: 20140107
  4. ULCOGANT [Suspect]
     Active Substance: SUCRALFATE
     Indication: PRODUCT USED FOR UNKNOWN INDICATION
     Dosage: 10 CAPS
     Route: 048
     Dates: start: 20140107, end: 20140107
  5. SEROQUEL XR [Suspect]
     Active Substance: QUETIAPINE FUMARATE
     Indication: PRODUCT USED FOR UNKNOWN INDICATION
     Dosage: 50 MG, 10 CAPS
     Route: 048
     Dates: start: 20140107, end: 20140107
  6. SEROQUEL XR [Suspect]
     Active Substance: QUETIAPINE FUMARATE
     Indication: PRODUCT USED FOR UNKNOWN INDICATION
     Dosage: 50 MG, 10 CAPS
     Route: 048
     Dates: start: 20140107, end: 20140107
  7. ZYPREXA [Suspect]
     Active Substance: OLANZAPINE
     Indication: PRODUCT USED FOR UNKNOWN INDICATION
     Dosage: 25 MG, 10 CAPS
     Route: 048
     Dates: start: 20140107, end: 20140107
  8. SEROQUEL XR [Suspect]
     Active Substance: QUETIAPINE FUMARATE
     Dosage: 200 MG, 10 CAPS
     Route: 048
     Dates: start: 20140107, end: 20140107

REACTIONS (5)
  - Vaginal haemorrhage [Unknown]
  - Exposure during pregnancy [Recovered/Resolved]
  - Suicidal ideation [Unknown]
  - Somnolence [Unknown]
  - Intentional overdose [Unknown]

NARRATIVE: CASE EVENT DATE: 20140107
